FAERS Safety Report 8197010-8 (Version None)
Quarter: 2012Q1

REPORT INFORMATION
  Report Type: 
  Country: None (occurrence: None)
  Receive Date: 20120227
  Receipt Date: 20111103
  Transmission Date: 20120608
  Serious: Yes (Other)
  Sender: FDA-Public Use
  Company Number: 338846

PATIENT
  Age: 54 Year
  Sex: Female
  Weight: 111.1 kg

DRUGS (5)
  1. HUMALOG-MIX (INSULIN LISPRO, INSULIN LISPRO PROTAMINE SUSPENSION) [Concomitant]
  2. VICTOZA [Suspect]
  3. VICTOZA [Suspect]
     Indication: TYPE 2 DIABETES MELLITUS
     Dosage: UNK, SUBCUTANEOUS 1.8 MG, QD, SUBCUTANEOUS
     Route: 058
     Dates: end: 20111028
  4. VICTOZA [Suspect]
     Indication: TYPE 2 DIABETES MELLITUS
     Dosage: UNK, SUBCUTANEOUS 1.8 MG, QD, SUBCUTANEOUS
     Route: 058
     Dates: start: 20100101
  5. HYDROCODONE BITARTRATE + ACETAMINOPHEN [Concomitant]

REACTIONS (3)
  - BLOOD GLUCOSE INCREASED [None]
  - URINARY TRACT INFECTION [None]
  - PALPITATIONS [None]
